FAERS Safety Report 24174537 (Version 7)
Quarter: 2025Q3

REPORT INFORMATION
  Report Type: Spontaneous
  Country: EU (occurrence: EU)
  Receive Date: 20240805
  Receipt Date: 20250825
  Transmission Date: 20251021
  Serious: Yes (Death, Life-Threatening, Hospitalization, Other)
  Sender: MYLAN
  Company Number: EU-BAXTER-2024BAX021665

PATIENT
  Age: 57 Year
  Sex: Female
  Weight: 70 kg

DRUGS (74)
  1. PREDNISONE [Suspect]
     Active Substance: PREDNISONE
     Indication: Richter^s syndrome
     Dosage: 100 MG/DAY, D1-D5, WEEKLY, AS PART OF AS PART OF R-CHOP REGIMEN, ROUTE: IV OR ORALLY
  2. PREDNISONE [Suspect]
     Active Substance: PREDNISONE
     Dosage: UNK UNK, 1Q3W, AS PART OF AS PART OF R-CHOP REGIMEN
  3. EPCORITAMAB [Suspect]
     Active Substance: EPCORITAMAB
     Indication: Richter^s syndrome
     Dates: start: 20240524, end: 20240524
  4. EPCORITAMAB [Suspect]
     Active Substance: EPCORITAMAB
     Dates: start: 20240531, end: 20240531
  5. EPCORITAMAB [Suspect]
     Active Substance: EPCORITAMAB
     Dosage: 0.8 MG INTERMEDIATE DOSE ON C1D8, WEEKLY, START TIME: 11:58 HRS
     Dates: start: 20240531, end: 20240531
  6. DOXORUBICIN HYDROCHLORIDE [Suspect]
     Active Substance: DOXORUBICIN HYDROCHLORIDE
     Indication: Richter^s syndrome
     Dates: start: 20240502, end: 20240502
  7. DOXORUBICIN HYDROCHLORIDE [Suspect]
     Active Substance: DOXORUBICIN HYDROCHLORIDE
     Dosage: 50 MILLIGRAM/SQ. METER,1Q3W, DOSAGE FORM: SOLUTION FOR INFUSION, AS PART OF R-CHOP REGIMEN, CYCLE 1
     Dates: start: 20240524, end: 20240524
  8. VINCRISTINE SULFATE [Suspect]
     Active Substance: VINCRISTINE SULFATE
     Indication: Richter^s syndrome
     Dosage: 1.4 MILLIGRAM/SQ. METER, Q3W
     Dates: start: 20240524, end: 20240524
  9. CYCLOPHOSPHAMIDE [Suspect]
     Active Substance: CYCLOPHOSPHAMIDE
     Indication: Richter^s syndrome
     Dates: start: 20240502, end: 20240502
  10. CYCLOPHOSPHAMIDE [Suspect]
     Active Substance: CYCLOPHOSPHAMIDE
     Dosage: 750 MILLIGRAM/SQ. METER,1Q3W, DOSAGE FORM: POWDER FOR SOLUTION FOR INJECTION, AS PART OF R-CHOP REG
     Dates: start: 20240524, end: 20240524
  11. OXYGEN [Suspect]
     Active Substance: OXYGEN
     Indication: Product used for unknown indication
  12. TPN [Suspect]
     Active Substance: AMINO ACIDS\DEXTROSE\ELECTROLYTES NOS\SOYBEAN OIL
     Indication: Product used for unknown indication
  13. DOXORUBICIN HYDROCHLORIDE [Suspect]
     Active Substance: DOXORUBICIN HYDROCHLORIDE
     Indication: Richter^s syndrome
     Dosage: 50 MILLIGRAM/SQ. METER, Q3W
     Dates: start: 20240524, end: 20240524
  14. RITUXIMAB [Suspect]
     Active Substance: RITUXIMAB
     Indication: Richter^s syndrome
     Dosage: 375 MG/SQ.METER, 1Q3W, CYCLE 1 DAY 1 (C1D1), AS PART OF R-CHOP REGIMEN, START TIME: 16:36
     Dates: start: 20240524, end: 20240524
  15. RITUXIMAB [Suspect]
     Active Substance: RITUXIMAB
     Dates: start: 20240430, end: 20240509
  16. ALBUMIN HUMAN [Suspect]
     Active Substance: ALBUMIN HUMAN
     Indication: Product used for unknown indication
  17. FENTANYL [Suspect]
     Active Substance: FENTANYL
     Indication: Product used for unknown indication
  18. RASBURICASE [Concomitant]
     Active Substance: RASBURICASE
  19. LEVOFLOXACIN [Concomitant]
     Active Substance: LEVOFLOXACIN
  20. LEVOFLOXACIN [Concomitant]
     Active Substance: LEVOFLOXACIN
     Dates: start: 20240511, end: 20240519
  21. CASPOFUNGIN [Concomitant]
     Active Substance: CASPOFUNGIN
  22. PIPERACILLIN SODIUM\TAZOBACTAM SODIUM [Concomitant]
     Active Substance: PIPERACILLIN SODIUM\TAZOBACTAM SODIUM
     Dates: start: 20240507, end: 20240519
  23. CHLORPHENIRAMINE MALEATE [Concomitant]
     Active Substance: CHLORPHENIRAMINE MALEATE
     Indication: Premedication
     Dates: start: 20240524, end: 20240531
  24. DEXAMETHASONE [Concomitant]
     Active Substance: DEXAMETHASONE
  25. DEXAMETHASONE [Concomitant]
     Active Substance: DEXAMETHASONE
  26. ACETAMINOPHEN [Concomitant]
     Active Substance: ACETAMINOPHEN
     Indication: Premedication
     Dates: start: 20240524, end: 20240531
  27. VANCOMYCIN [Concomitant]
     Active Substance: VANCOMYCIN
     Dates: start: 20240509, end: 20240518
  28. FILGRASTIM [Concomitant]
     Active Substance: FILGRASTIM
     Dates: start: 20240507, end: 20240512
  29. ZOLEDRONIC ACID [Concomitant]
     Active Substance: ZOLEDRONIC ACID
  30. LINEZOLID [Concomitant]
     Active Substance: LINEZOLID
  31. CALCIUM GLUCONATE [Concomitant]
     Active Substance: CALCIUM GLUCONATE
  32. CITALOPRAM [Concomitant]
     Active Substance: CITALOPRAM
  33. CHOLECALCIFEROL [Concomitant]
     Active Substance: CHOLECALCIFEROL
  34. FUROSEMIDE [Concomitant]
     Active Substance: FUROSEMIDE
     Dates: start: 20240430, end: 20240503
  35. LEVOSULPIRIDE [Concomitant]
     Active Substance: LEVOSULPIRIDE
  36. METOCLOPRAMIDE [Concomitant]
     Active Substance: METOCLOPRAMIDE
     Dates: start: 20240530, end: 20240604
  37. DOXORUBICIN [Concomitant]
     Active Substance: DOXORUBICIN
     Dates: start: 20240502, end: 20240502
  38. NEOSTIGMINE METHYLSULFATE [Concomitant]
     Active Substance: NEOSTIGMINE METHYLSULFATE
     Dates: start: 20240603, end: 20240604
  39. DELORAZEPAM [Concomitant]
     Active Substance: DELORAZEPAM
  40. AMPHOTERICIN B [Concomitant]
     Active Substance: AMPHOTERICIN B
  41. ACETYLCYSTEINE [Concomitant]
     Active Substance: ACETYLCYSTEINE
  42. MEROPENEM [Concomitant]
     Active Substance: MEROPENEM
  43. INSULIN HUMAN [Concomitant]
     Active Substance: INSULIN HUMAN
  44. BACTRIM [Concomitant]
     Active Substance: SULFAMETHOXAZOLE\TRIMETHOPRIM
     Dates: start: 20240530, end: 20240603
  45. TRAMADOL [Concomitant]
     Active Substance: TRAMADOL
  46. PANTOPRAZOLE [Concomitant]
     Active Substance: PANTOPRAZOLE
  47. RITUXIMAB [Concomitant]
     Active Substance: RITUXIMAB
     Dates: start: 20240506, end: 20240506
  48. TOCILIZUMAB [Concomitant]
     Active Substance: TOCILIZUMAB
  49. VORICONAZOLE [Concomitant]
     Active Substance: VORICONAZOLE
  50. CALCIUM CHLORIDE [Concomitant]
     Active Substance: CALCIUM CHLORIDE
  51. DEXAMETHASONE PHOSPHATE [Concomitant]
     Active Substance: DEXAMETHASONE PHOSPHATE
     Dates: start: 20240524, end: 20240604
  52. DEXAMETHASONE PHOSPHATE [Concomitant]
     Active Substance: DEXAMETHASONE PHOSPHATE
     Dates: start: 20240501, end: 20240506
  53. CEFTRIAXONE [Concomitant]
     Active Substance: CEFTRIAXONE
     Dates: start: 20240504, end: 20240507
  54. PALONOSETRON [Concomitant]
     Active Substance: PALONOSETRON
     Dates: start: 20240502, end: 20240502
  55. CYCLOPHOSPHAMIDE [Concomitant]
     Active Substance: CYCLOPHOSPHAMIDE
     Dates: start: 20240502, end: 20240502
  56. MIDAZOLAM [Concomitant]
     Active Substance: MIDAZOLAM
  57. QUETIAPINE [Concomitant]
     Active Substance: QUETIAPINE
  58. QUETIAPINE [Concomitant]
     Active Substance: QUETIAPINE
  59. DEXAMETHASONE [Concomitant]
     Active Substance: DEXAMETHASONE
  60. HYDROCORTISONE [Concomitant]
     Active Substance: HYDROCORTISONE
     Dates: start: 20240531, end: 20240601
  61. HYDROCORTISONE [Concomitant]
     Active Substance: HYDROCORTISONE
     Dates: start: 20240506, end: 20240506
  62. CANRENOATE POTASSIUM [Concomitant]
     Active Substance: CANRENOATE POTASSIUM
     Dates: start: 20240501, end: 20240503
  63. ACYCLOVIR [Concomitant]
     Active Substance: ACYCLOVIR
  64. ENOXAPARIN [Concomitant]
     Active Substance: ENOXAPARIN
     Dates: start: 20240430, end: 20240509
  65. MAGNESIUM ASPARTATE\POTASSIUM ASPARTATE [Concomitant]
     Active Substance: MAGNESIUM ASPARTATE\POTASSIUM ASPARTATE
  66. MAGNESIUM ASPARTATE\POTASSIUM ASPARTATE [Concomitant]
     Active Substance: MAGNESIUM ASPARTATE\POTASSIUM ASPARTATE
  67. BECLOMETHASONE DIPROPIONATE [Concomitant]
     Active Substance: BECLOMETHASONE DIPROPIONATE
  68. ALPRAZOLAM [Concomitant]
     Active Substance: ALPRAZOLAM
  69. Dihydrocodeine;Pentetrazol [Concomitant]
     Dates: start: 20240516, end: 20240529
  70. AMINO ACIDS\DEXTROSE\ELECTROLYTES NOS\SOYBEAN OIL [Concomitant]
     Active Substance: AMINO ACIDS\DEXTROSE\ELECTROLYTES NOS\SOYBEAN OIL
  71. AMINO ACIDS\DEXTROSE\ELECTROLYTES NOS\SOYBEAN OIL [Concomitant]
     Active Substance: AMINO ACIDS\DEXTROSE\ELECTROLYTES NOS\SOYBEAN OIL
  72. SODIUM SUCCINATE [Concomitant]
     Active Substance: SODIUM SUCCINATE HEXAHYDRATE
     Dates: start: 20240531, end: 20240601
  73. SODIUM SUCCINATE [Concomitant]
     Active Substance: SODIUM SUCCINATE HEXAHYDRATE
     Dates: start: 20240531, end: 20240601
  74. ACETAMINOPHEN [Concomitant]
     Active Substance: ACETAMINOPHEN
     Indication: Premedication

REACTIONS (13)
  - Haemoperitoneum [Fatal]
  - Abdominal distension [Fatal]
  - Pyrexia [Fatal]
  - Hypotension [Fatal]
  - Necrotising colitis [Fatal]
  - Blood test abnormal [Fatal]
  - Flatulence [Fatal]
  - Chromaturia [Fatal]
  - Urine abnormality [Fatal]
  - Gastrointestinal dilation procedure [Fatal]
  - Respiratory failure [Not Recovered/Not Resolved]
  - General physical health deterioration [Unknown]
  - Immunosuppression [Unknown]

NARRATIVE: CASE EVENT DATE: 20240530
